FAERS Safety Report 13466301 (Version 1)
Quarter: 2017Q2

REPORT INFORMATION
  Report Type: Spontaneous
  Country: US (occurrence: US)
  Receive Date: 20170421
  Receipt Date: 20170421
  Transmission Date: 20170830
  Serious: Yes (Hospitalization, Disabling, Other)
  Sender: FDA-Public Use
  Company Number: None

PATIENT
  Age: 78 Year
  Sex: Male
  Weight: 108.96 kg

DRUGS (34)
  1. LANSOPRAZOLE. [Suspect]
     Active Substance: LANSOPRAZOLE
     Indication: GASTROOESOPHAGEAL REFLUX DISEASE
     Dosage: ?          QUANTITY:ECONOMIES?AKING OR;?
     Route: 048
  2. OXYCODONE [Concomitant]
     Active Substance: OXYCODONE
  3. FUROSEMIDE. [Concomitant]
     Active Substance: FUROSEMIDE
  4. ANUSOL-HC [Concomitant]
  5. XANAX [Concomitant]
     Active Substance: ALPRAZOLAM
  6. KLOR-CON M10 [Concomitant]
     Active Substance: POTASSIUM CHLORIDE
  7. ASPIRIN LOW DOSE [Concomitant]
     Active Substance: ASPIRIN
  8. MELATONIN [Concomitant]
     Active Substance: MELATONIN
  9. LANSOPRAZOLE. [Suspect]
     Active Substance: LANSOPRAZOLE
     Indication: ANAEMIA
     Dosage: ?          QUANTITY:ECONOMIES?AKING OR;?
     Route: 048
  10. LANSOPRAZOLE. [Suspect]
     Active Substance: LANSOPRAZOLE
     Indication: OESOPHAGEAL HAEMORRHAGE
     Dosage: ?          QUANTITY:ECONOMIES?AKING OR;?
     Route: 048
  11. CARVEDILOL. [Concomitant]
     Active Substance: CARVEDILOL
  12. PREVACID [Concomitant]
     Active Substance: LANSOPRAZOLE
  13. VENTOLIN HFA [Concomitant]
     Active Substance: ALBUTEROL SULFATE
  14. BUPRENORPHINE. [Concomitant]
     Active Substance: BUPRENORPHINE
  15. FERROUS SULFATE. [Concomitant]
     Active Substance: FERROUS SULFATE
  16. BUPROPION HCL ER (XL) [Concomitant]
  17. MULTIPLE VITAMINS [Concomitant]
     Active Substance: VITAMINS
  18. LANSOPRAZOLE. [Suspect]
     Active Substance: LANSOPRAZOLE
     Indication: BARRETT^S OESOPHAGUS
     Dosage: ?          QUANTITY:ECONOMIES?AKING OR;?
     Route: 048
  19. LANSOPRAZOLE. [Suspect]
     Active Substance: LANSOPRAZOLE
     Indication: HIATUS HERNIA
     Dosage: ?          QUANTITY:ECONOMIES?AKING OR;?
     Route: 048
  20. SOTALOL HCL [Concomitant]
     Active Substance: SOTALOL
  21. LANTUS [Concomitant]
     Active Substance: INSULIN GLARGINE
  22. LOSARTAN POTASSIUM. [Concomitant]
     Active Substance: LOSARTAN POTASSIUM
  23. ORPHENADRINE CITRATE ER TABLETS [Concomitant]
     Active Substance: ORPHENADRINE CITRATE
  24. CRESTOR [Concomitant]
     Active Substance: ROSUVASTATIN CALCIUM
  25. HUMALOG KWIKPEN [Concomitant]
     Active Substance: INSULIN LISPRO
  26. FENOFIBRATE. [Concomitant]
     Active Substance: FENOFIBRATE
  27. ADVAIR DISKUS [Concomitant]
     Active Substance: FLUTICASONE PROPIONATE\SALMETEROL XINAFOATE
  28. ADCIRCA [Concomitant]
     Active Substance: TADALAFIL
  29. HEART MEDS [Concomitant]
  30. AZITHROMYCIN ANHYDROUS. [Concomitant]
     Active Substance: AZITHROMYCIN ANHYDROUS
  31. CALCIUM +D [Concomitant]
     Active Substance: CALCIUM\VITAMIN D
  32. LINZESS [Concomitant]
     Active Substance: LINACLOTIDE
  33. ROSUVASTATIN CALCIUM. [Concomitant]
     Active Substance: ROSUVASTATIN CALCIUM
  34. LUPRON DEPOT [Concomitant]
     Active Substance: LEUPROLIDE ACETATE

REACTIONS (5)
  - Fall [None]
  - Lumbar vertebral fracture [None]
  - Rib fracture [None]
  - Spinal fracture [None]
  - Spinal compression fracture [None]
